FAERS Safety Report 17510497 (Version 1)
Quarter: 2020Q1

REPORT INFORMATION
  Report Type: Spontaneous
  Country: DE (occurrence: DE)
  Receive Date: 20200306
  Receipt Date: 20200306
  Transmission Date: 20200409
  Serious: Yes (Other)
  Sender: FDA-Public Use
  Company Number: DE-ABBVIE-20K-062-3308894-00

PATIENT
  Sex: Female

DRUGS (1)
  1. MAVIRET [Suspect]
     Active Substance: GLECAPREVIR\PIBRENTASVIR
     Indication: HEPATITIS C
     Dosage: 1 X 3 TABLETTEN ABENDS ZU DEN MAHLZEITEN?100 MG/40 MG FILMTABLETTEN - OP84(4X21)
     Route: 048
     Dates: start: 201911, end: 201912

REACTIONS (12)
  - Fear of disease [Unknown]
  - Cyanosis [Unknown]
  - Headache [Not Recovered/Not Resolved]
  - Gingival bleeding [Unknown]
  - Rash [Unknown]
  - Palpitations [Unknown]
  - Fatigue [Recovering/Resolving]
  - Malaise [Unknown]
  - Dysgeusia [Unknown]
  - Gingival recession [Recovering/Resolving]
  - Blood pressure increased [Unknown]
  - Gingival discolouration [Unknown]

NARRATIVE: CASE EVENT DATE: 2019
